FAERS Safety Report 9475436 (Version 1)
Quarter: 2013Q3

REPORT INFORMATION
  Report Type: Spontaneous
  Country: US (occurrence: None)
  Receive Date: 20130821
  Receipt Date: 20130821
  Transmission Date: 20140515
  Serious: Yes (Hospitalization)
  Sender: FDA-Public Use
  Company Number: AXC-2013-000389

PATIENT
  Age: 62 Year
  Sex: Female

DRUGS (1)
  1. MESALAMINE [Suspect]
     Indication: COLITIS ULCERATIVE

REACTIONS (5)
  - Transaminases increased [None]
  - Abdominal pain upper [None]
  - Abdominal tenderness [None]
  - Nausea [None]
  - Decreased appetite [None]
